FAERS Safety Report 10959297 (Version 1)
Quarter: 2015Q1

REPORT INFORMATION
  Report Type: Spontaneous
  Country: US (occurrence: US)
  Receive Date: 20150327
  Receipt Date: 20150327
  Transmission Date: 20150721
  Serious: Yes (Death)
  Sender: FDA-Public Use
  Company Number: US-CIPLA LTD.-2015US02426

PATIENT

DRUGS (5)
  1. HYDROCODONE [Suspect]
     Active Substance: HYDROCODONE
  2. HEROIN [Suspect]
     Active Substance: DIACETYLMORPHINE
  3. COCAINE [Suspect]
     Active Substance: COCAINE
  4. DOXYLAMINE [Suspect]
     Active Substance: DOXYLAMINE
  5. CITALOPRAM [Suspect]
     Active Substance: CITALOPRAM HYDROBROMIDE

REACTIONS (1)
  - Drug abuse [Fatal]
